FAERS Safety Report 16712019 (Version 2)
Quarter: 2019Q4

REPORT INFORMATION
  Report Type: Spontaneous
  Country: DE (occurrence: DE)
  Receive Date: 20190816
  Receipt Date: 20191015
  Transmission Date: 20200122
  Serious: Yes (Hospitalization, Congenital Anomaly, Other)
  Sender: FDA-Public Use
  Company Number: DE-JNJFOC-20190734322

PATIENT
  Sex: Female
  Weight: 1.62 kg

DRUGS (13)
  1. RISPERDAL CONSTA [Suspect]
     Active Substance: RISPERIDONE
     Indication: PSYCHOTIC DISORDER
     Dosage: 25 [MG/2WEEKS (AB 4.4 3WEEKS)]/ TILL WK 5 EVERY 2 WKS
     Route: 064
     Dates: start: 201104, end: 2011
  2. TOLPERISONE [Concomitant]
     Active Substance: TOLPERISONE
     Route: 064
     Dates: start: 201104, end: 20110516
  3. RISPERDAL CONSTA [Suspect]
     Active Substance: RISPERIDONE
     Dosage: 25 MILLIGRAM EVERY 3 WEEKS
     Route: 064
     Dates: start: 2011, end: 20111124
  4. BETAMETHASONE. [Concomitant]
     Active Substance: BETAMETHASONE
     Indication: MATERNAL THERAPY TO ENHANCE FOETAL LUNG MATURITY
     Route: 064
     Dates: start: 20111120, end: 20111121
  5. INSULIN [Concomitant]
     Active Substance: INSULIN NOS
     Indication: GESTATIONAL DIABETES
     Dosage: FROM GESTATIONAL WEEK 27
     Route: 064
     Dates: start: 2011
  6. SEROQUEL [Suspect]
     Active Substance: QUETIAPINE FUMARATE
     Route: 064
     Dates: start: 201105, end: 20111124
  7. PROMETHAZINE [Suspect]
     Active Substance: PROMETHAZINE HYDROCHLORIDE
     Dosage: 50 MG, 4 TIMES A DAY (QID)
     Route: 064
     Dates: start: 2011, end: 20111124
  8. CARBAMAZEPINE. [Concomitant]
     Active Substance: CARBAMAZEPINE
     Indication: TRIGEMINAL NEURALGIA
     Route: 064
     Dates: start: 20110927, end: 20111124
  9. MELPERONE [Concomitant]
     Active Substance: MELPERONE
     Indication: PSYCHOTIC DISORDER
     Route: 064
     Dates: start: 201104, end: 20110516
  10. SEROQUEL [Suspect]
     Active Substance: QUETIAPINE FUMARATE
     Indication: PSYCHOTIC DISORDER
     Route: 064
     Dates: start: 201104, end: 201105
  11. PROMETHAZINE [Suspect]
     Active Substance: PROMETHAZINE HYDROCHLORIDE
     Indication: RESTLESSNESS
     Dosage: 10 MG, 3 TIMES A DAY (TID)
     Route: 064
     Dates: start: 20110527, end: 2011
  12. IBUPROFEN. [Concomitant]
     Active Substance: IBUPROFEN
     Indication: TRIGEMINAL NEURALGIA
     Route: 064
     Dates: start: 20110927, end: 20111124
  13. ACETYLSALICYLIC ACID [Concomitant]
     Active Substance: ASPIRIN
     Indication: PRE-ECLAMPSIA
     Route: 064
     Dates: start: 2011, end: 20111120

REACTIONS (6)
  - Haemangioma congenital [Unknown]
  - Low birth weight baby [Unknown]
  - Tracheo-oesophageal fistula [Recovered/Resolved with Sequelae]
  - Foetal exposure during pregnancy [Recovered/Resolved]
  - Premature baby [Unknown]
  - Oesophageal atresia [Recovered/Resolved with Sequelae]

NARRATIVE: CASE EVENT DATE: 20110527
